FAERS Safety Report 9972690 (Version 2)
Quarter: 2014Q1

REPORT INFORMATION
  Report Type: Report from Study
  Country: JP (occurrence: JP)
  Receive Date: 20140306
  Receipt Date: 20140306
  Transmission Date: 20141002
  Serious: Yes (Death, Hospitalization)
  Sender: FDA-Public Use
  Company Number: JP-009507513-2011SP046140

PATIENT
  Age: 75 Year
  Sex: Male
  Weight: 48.4 kg

DRUGS (14)
  1. TEMOZOLOMIDE [Suspect]
     Indication: ANAPLASTIC ASTROCYTOMA
     Dosage: 100 MG/M2, QD
     Route: 048
     Dates: start: 20090323, end: 20090410
  2. TEMOZOLOMIDE [Suspect]
     Dosage: 200 MG/M2, QD
     Route: 048
     Dates: start: 20090508, end: 20090512
  3. BAKTAR [Suspect]
     Indication: ANTIFUNGAL PROPHYLAXIS
     Dosage: DAILY DOSE UNKNOWN
     Route: 048
     Dates: start: 20090323, end: 200905
  4. DEPAKENE [Suspect]
     Dosage: DAILY DOSE UNKNOWN
     Route: 048
     Dates: end: 20090518
  5. LOXOPROFEN SODIUM [Concomitant]
     Dosage: DAILY DOSE UNKNOWN
     Route: 048
  6. MAGNESIUM OXIDE [Concomitant]
     Dosage: DAILY DOSE UNKNOWN
     Route: 048
  7. LAXOBERON [Concomitant]
     Dosage: DAILY DOSE UNKNOWN
     Route: 048
  8. NAVOBAN [Concomitant]
     Indication: PROPHYLAXIS
     Dosage: DAILY DOSE UNKNOWN
     Route: 048
     Dates: start: 20090323, end: 20090512
  9. PRIMPERAN [Concomitant]
     Indication: PROPHYLAXIS
     Dosage: DAILY DOSE UNKNOWN
     Route: 048
     Dates: start: 20090328
  10. PREDNISOLONE [Concomitant]
     Dosage: FORMULATION:POR,DAILY DOSE UNKNOWN
     Route: 048
     Dates: start: 20090401
  11. GASTER D [Concomitant]
     Dosage: DAILY DOSE UNKNOWN
     Route: 048
     Dates: start: 20090401, end: 20090518
  12. URSO [Concomitant]
     Indication: HEPATIC FUNCTION ABNORMAL
     Dosage: DAILY DOSE UNKNOWN
     Route: 048
     Dates: start: 20090522
  13. ISOBIDE [Concomitant]
     Dosage: DAILY DOSE UNKNOWN
     Route: 048
     Dates: start: 20090611
  14. MUCOSTA [Concomitant]
     Indication: PROPHYLAXIS
     Dosage: DAILY DOSE UNKNOWN
     Route: 048
     Dates: start: 20090629

REACTIONS (5)
  - Disease progression [Fatal]
  - Hepatic function abnormal [Recovered/Resolved]
  - Blood creatinine increased [Recovered/Resolved]
  - White blood cell count decreased [Recovered/Resolved]
  - Lymphocyte count decreased [Recovered/Resolved]
